FAERS Safety Report 23223355 (Version 1)
Quarter: 2023Q4

REPORT INFORMATION
  Report Type: Spontaneous
  Country: EG (occurrence: EG)
  Receive Date: 20231123
  Receipt Date: 20231123
  Transmission Date: 20240110
  Serious: Yes (Other)
  Sender: FDA-Public Use
  Company Number: EG-NOVOPROD-1141245

PATIENT
  Age: 359 Month
  Sex: Female

DRUGS (5)
  1. NOVORAPID [Suspect]
     Active Substance: INSULIN ASPART
     Dosage: 6U AT MORNING, 15U AT LUNCH AND 8U OR 5U AT NIGHT.
     Route: 058
  2. NOVORAPID [Suspect]
     Active Substance: INSULIN ASPART
     Indication: Type 1 diabetes mellitus
     Dosage: 16 IU, QD( 10U AT MORNING AND 6U AT NIGHT )
     Route: 058
  3. PROTOFIX [Concomitant]
     Indication: Gastrooesophageal reflux disease
     Dosage: 1 TAB WHEN IT IS NEEDED
     Route: 048
  4. BENFOTIAMINE\CYANOCOBALAMIN\PYRIDOXINE HYDROCHLORIDE [Concomitant]
     Active Substance: BENFOTIAMINE\CYANOCOBALAMIN\PYRIDOXINE HYDROCHLORIDE
     Indication: Nervous system disorder
     Dosage: 1 TAB/DAY
     Route: 060
  5. PANADOL [Concomitant]
     Active Substance: ACETAMINOPHEN
     Indication: Analgesic therapy
     Dosage: 1 TAB WHEN IT^S NEEDED
     Route: 048

REACTIONS (7)
  - Seizure [Not Recovered/Not Resolved]
  - Cataract operation complication [Not Recovered/Not Resolved]
  - Accident [Not Recovered/Not Resolved]
  - Arthrofibrosis [Not Recovered/Not Resolved]
  - Headache [Not Recovered/Not Resolved]
  - Joint stiffness [Not Recovered/Not Resolved]
  - Hyperglycaemia [Not Recovered/Not Resolved]
